FAERS Safety Report 24706535 (Version 1)
Quarter: 2024Q4

REPORT INFORMATION
  Report Type: Spontaneous
  Country: JP (occurrence: JP)
  Receive Date: 20241206
  Receipt Date: 20241206
  Transmission Date: 20250114
  Serious: Yes (Death, Hospitalization, Other)
  Sender: MERCK
  Company Number: JP-009507513-2412JPN001731

PATIENT
  Age: 69 Year
  Sex: Male

DRUGS (9)
  1. PEMBROLIZUMAB [Suspect]
     Active Substance: PEMBROLIZUMAB
     Indication: Prostate cancer metastatic
     Dosage: 200 MILLIGRAM
     Route: 042
  2. DOCETAXEL [Concomitant]
     Active Substance: DOCETAXEL
     Indication: Prostate cancer metastatic
     Dosage: 70 MILLIGRAM/SQ. METER
     Route: 042
  3. CABAZITAXEL [Concomitant]
     Active Substance: CABAZITAXEL
     Indication: Prostate cancer metastatic
     Dosage: 25 MILLIGRAM/SQ. METER
     Route: 042
  4. RADIUM RA-223 DICHLORIDE [Concomitant]
     Active Substance: RADIUM RA-223 DICHLORIDE
     Indication: Prostate cancer metastatic
     Dosage: 55 KBQ/KG/MONTH
     Route: 042
  5. LEUPROLIDE ACETATE [Concomitant]
     Active Substance: LEUPROLIDE ACETATE
     Indication: Prostate cancer metastatic
     Dosage: 22.5 MG, ONCE EVERY 24 WEEKS
     Route: 058
  6. BICALUTAMIDE [Concomitant]
     Active Substance: BICALUTAMIDE
     Indication: Prostate cancer metastatic
     Dosage: 80 MILLIGRAM, QD
     Route: 048
  7. ABIRATERONE [Concomitant]
     Active Substance: ABIRATERONE\ABIRATERONE ACETATE
     Indication: Prostate cancer metastatic
     Dosage: 1000 MILLIGRAM, QD
     Route: 048
  8. ENZALUTAMIDE [Concomitant]
     Active Substance: ENZALUTAMIDE
     Indication: Prostate cancer metastatic
     Dosage: 160 MILLIGRAM, QD
     Route: 048
  9. ETHINYL ESTRADIOL [Concomitant]
     Active Substance: ETHINYL ESTRADIOL
     Indication: Prostate cancer metastatic
     Dosage: 1 MILLIGRAM, QD
     Route: 048

REACTIONS (5)
  - Cardiac failure [Fatal]
  - Multiple organ dysfunction syndrome [Fatal]
  - Immune-mediated myocarditis [Fatal]
  - Cardiogenic shock [Unknown]
  - Product use in unapproved indication [Unknown]
